FAERS Safety Report 7561193-0 (Version None)
Quarter: 2011Q2

REPORT INFORMATION
  Report Type: 
  Country: None (occurrence: None)
  Receive Date: 20110621
  Receipt Date: 20101029
  Transmission Date: 20111010
  Serious: No
  Sender: FDA-Public Use
  Company Number: US-ASTRAZENECA-2010SE46018

PATIENT
  Age: 75 Year
  Sex: Female

DRUGS (2)
  1. HEART MEDICATIONS [Concomitant]
  2. PULMICORT FLEXHALER [Suspect]
     Indication: ASTHMA
     Dosage: 180 MCG-2 PUFFS EVERY DAY BEFORE NOON
     Route: 055
     Dates: start: 20080101

REACTIONS (4)
  - ASTHMA [None]
  - PALPITATIONS [None]
  - DYSPNOEA [None]
  - DRUG INEFFECTIVE [None]
